FAERS Safety Report 20459759 (Version 4)
Quarter: 2025Q2

REPORT INFORMATION
  Report Type: Report from Study
  Country: FR (occurrence: FR)
  Receive Date: 20220211
  Receipt Date: 20250617
  Transmission Date: 20250717
  Serious: Yes (Life-Threatening, Hospitalization, Other)
  Sender: AUROBINDO
  Company Number: FR-SERVIER-S22000777

PATIENT
  Age: 64 Year
  Sex: Male
  Weight: 84 kg

DRUGS (9)
  1. AMLODIPINE BESYLATE [Suspect]
     Active Substance: AMLODIPINE BESYLATE
     Indication: Product used for unknown indication
     Route: 048
  2. AMIODARONE [Interacting]
     Active Substance: AMIODARONE
     Indication: Product used for unknown indication
     Route: 048
  3. ALPRAZOLAM [Interacting]
     Active Substance: ALPRAZOLAM
     Indication: Product used for unknown indication
     Route: 048
  4. PERINDOPRIL [Suspect]
     Active Substance: PERINDOPRIL
     Indication: Product used for unknown indication
     Route: 048
  5. RIVAROXABAN [Interacting]
     Active Substance: RIVAROXABAN
     Indication: Atrial fibrillation
     Dosage: 420 MILLIGRAM, ONCE A DAY
     Route: 048
  6. RIVAROXABAN [Interacting]
     Active Substance: RIVAROXABAN
     Indication: Anticoagulant therapy
     Route: 048
  7. RIVAROXABAN [Interacting]
     Active Substance: RIVAROXABAN
     Indication: Suicide attempt
  8. ZOPICLONE [Suspect]
     Active Substance: ZOPICLONE
     Indication: Product used for unknown indication
     Route: 048
  9. GLICLAZIDE [Interacting]
     Active Substance: GLICLAZIDE
     Indication: Product used for unknown indication
     Route: 048

REACTIONS (15)
  - Acute kidney injury [Unknown]
  - Distributive shock [Unknown]
  - Vasoplegia syndrome [Unknown]
  - Suicide attempt [Unknown]
  - Shock [Unknown]
  - Intentional overdose [Unknown]
  - Bradycardia [Unknown]
  - Cardiogenic shock [Unknown]
  - Renal failure [Unknown]
  - Somnolence [Unknown]
  - Hypotension [Unknown]
  - Intentional product misuse [Unknown]
  - Toxicity to various agents [Unknown]
  - Poisoning deliberate [Unknown]
  - Drug interaction [Unknown]
